FAERS Safety Report 6000369-0 (Version None)
Quarter: 2008Q4

REPORT INFORMATION
  Report Type: 
  Country: None (occurrence: None)
  Receive Date: 20081211
  Receipt Date: 20081201
  Transmission Date: 20090506
  Serious: Yes (Death, Hospitalization)
  Sender: FDA-Public Use
  Company Number: 2008AP003299

PATIENT
  Age: 76 Year
  Sex: Male

DRUGS (20)
  1. TERBINAFINE HCL [Suspect]
     Indication: FUNGAL INFECTION
     Dosage: 250 MG; PO
     Route: 048
     Dates: start: 20080101, end: 20081030
  2. AMOXICILLIN [Concomitant]
  3. BENZYLPENICILLIN (BENZYLPENICILLIN) [Concomitant]
  4. CEFOTAXIME SODIUM [Concomitant]
  5. CEFUROXIME (CEFUROXIME) [Concomitant]
  6. CLARITHROMYCIN (CLARITHROMYCIN) [Concomitant]
  7. ENOXAPARIN SODIUM [Concomitant]
  8. CODEINE PHOSPHATE (CODEINE PHOSPHATE) [Concomitant]
  9. CYANOCOBALAMIN (CYANOCOBALAMIN) [Concomitant]
  10. FLUCLOXACILLIN (FLUCLOXACILLIN) [Concomitant]
  11. FLUOXETINE HYDROCHLORIDE (FLUOXETINE HYDROCHLORIDE) [Concomitant]
  12. GLYCOPYRRONIUM BROMIDE (GLYCOPYRRONIUM BROMIDE) [Concomitant]
  13. HYDROCORTISONE (HYDROCORTISONE) [Concomitant]
  14. METOCLOPRAMIDE (METOCLOPRAMIDE) [Concomitant]
  15. MORPHINE [Concomitant]
  16. ACETAMINOPHEN [Concomitant]
  17. RANITIDINE [Concomitant]
  18. TRAMADOL HCL [Concomitant]
  19. BETAMETHASONE VALERATE [Concomitant]
  20. CLIOQUINOL (CLIOQUINOL) [Concomitant]

REACTIONS (1)
  - TOXIC EPIDERMAL NECROLYSIS [None]
